FAERS Safety Report 6526952-1 (Version None)
Quarter: 2010Q1

REPORT INFORMATION
  Report Type: 
  Country: None (occurrence: None)
  Receive Date: 20100105
  Receipt Date: 20091231
  Transmission Date: 20100710
  Serious: Yes (Hospitalization)
  Sender: FDA-Public Use
  Company Number: US-SP-2009-04138

PATIENT
  Age: 72 Year
  Sex: Male

DRUGS (2)
  1. THERACYS [Suspect]
     Indication: BLADDER CANCER
     Route: 043
     Dates: start: 20090922
  2. THERACYS [Suspect]
     Route: 043
     Dates: start: 20090922

REACTIONS (7)
  - ARTHRALGIA [None]
  - JOINT SWELLING [None]
  - NECK PAIN [None]
  - OEDEMA [None]
  - PAIN [None]
  - PAIN IN EXTREMITY [None]
  - SERUM SICKNESS [None]
